FAERS Safety Report 25918489 (Version 1)
Quarter: 2025Q4

REPORT INFORMATION
  Report Type: Report from Study
  Country: GB (occurrence: GB)
  Receive Date: 20251014
  Receipt Date: 20251014
  Transmission Date: 20260118
  Serious: Yes (Other)
  Sender: ALEXION PHARMACEUTICALS
  Company Number: GB-AstraZeneca-CH-00969791A

PATIENT
  Age: 35 Year
  Sex: Female

DRUGS (2)
  1. TEZEPELUMAB [Suspect]
     Active Substance: TEZEPELUMAB
     Indication: Asthma
     Dosage: 210 MILLIGRAM
  2. TEZEPELUMAB [Suspect]
     Active Substance: TEZEPELUMAB

REACTIONS (6)
  - Lower respiratory tract infection [Unknown]
  - Thrombosis [Unknown]
  - Asthma [Unknown]
  - Headache [Unknown]
  - Hypoaesthesia [Unknown]
  - Aphonia [Unknown]
